FAERS Safety Report 6076216-8 (Version None)
Quarter: 2009Q1

REPORT INFORMATION
  Report Type: 
  Country: None (occurrence: None)
  Receive Date: 20090212
  Receipt Date: 20090202
  Transmission Date: 20090719
  Serious: Yes (Other)
  Sender: FDA-Public Use
  Company Number: SE-PFIZER INC-2008158466

PATIENT

DRUGS (2)
  1. TROMBYL [Suspect]
  2. AMLODIPINE BESILATE [Suspect]

REACTIONS (3)
  - EPISTAXIS [None]
  - GASTRIC HAEMORRHAGE [None]
  - HAEMATOMA [None]
